FAERS Safety Report 18519528 (Version 2)
Quarter: 2020Q4

REPORT INFORMATION
  Report Type: Report from Study
  Country: DE (occurrence: DE)
  Receive Date: 20201119
  Receipt Date: 20201123
  Transmission Date: 20210114
  Serious: Yes (Hospitalization)
  Sender: FDA-Public Use
  Company Number: DE-BIOGEN-2020BI00945324

PATIENT
  Sex: Female

DRUGS (3)
  1. CORTISONE [Suspect]
     Active Substance: CORTISONE
     Indication: PYREXIA
     Dosage: HIGH DOSE PULSE THERAPY
     Route: 065
     Dates: start: 2017, end: 2017
  2. VITAMIN D [Concomitant]
     Active Substance: VITAMIN D NOS
     Indication: VITAMIN D DEFICIENCY
     Dosage: 20000
     Route: 065
  3. TECFIDERA [Suspect]
     Active Substance: DIMETHYL FUMARATE
     Indication: MULTIPLE SCLEROSIS
     Dosage: MAINTENANCE DOSE
     Route: 048
     Dates: start: 20150323

REACTIONS (3)
  - Pyrexia [Recovered/Resolved]
  - Multiple sclerosis relapse [Recovered/Resolved]
  - Arrhythmia [Recovered/Resolved]

NARRATIVE: CASE EVENT DATE: 2017
